FAERS Safety Report 12353282 (Version 1)
Quarter: 2016Q2

REPORT INFORMATION
  Report Type: Spontaneous
  Country: FR (occurrence: FR)
  Receive Date: 20160510
  Receipt Date: 20160510
  Transmission Date: 20160815
  Serious: Yes (Hospitalization)
  Sender: FDA-Public Use
  Company Number: FR-WARNER CHILCOTT, LLC-1051827

PATIENT
  Age: 78 Year
  Sex: Female

DRUGS (13)
  1. LYSANXIA [Suspect]
     Active Substance: PRAZEPAM
     Route: 048
  2. SPECIAFOLDINE [Suspect]
     Active Substance: FOLIC ACID
     Route: 048
  3. SKENAN [Suspect]
     Active Substance: MORPHINE SULFATE
     Route: 046
  4. THERALENE [Suspect]
     Active Substance: TRIMEPRAZINE
     Route: 048
  5. ACTONEL [Suspect]
     Active Substance: RISEDRONATE SODIUM
     Route: 048
  6. FUCIDINE [Suspect]
     Active Substance: FUSIDIC ACID
     Route: 048
     Dates: end: 201603
  7. OMEPRAZOLE. [Suspect]
     Active Substance: OMEPRAZOLE
     Route: 048
  8. PREDNISOLONE. [Suspect]
     Active Substance: PREDNISOLONE
     Route: 048
  9. CYMBALTA [Suspect]
     Active Substance: DULOXETINE HYDROCHLORIDE
     Route: 048
     Dates: end: 201603
  10. RAMIPRIL. [Suspect]
     Active Substance: RAMIPRIL
     Route: 048
  11. RIFADINE [Suspect]
     Active Substance: RIFAMPIN
     Route: 048
  12. HALDOL [Suspect]
     Active Substance: HALOPERIDOL
     Route: 048
  13. METHOTREXATE SODIUM. [Suspect]
     Active Substance: METHOTREXATE SODIUM
     Route: 048

REACTIONS (1)
  - Cholestasis [Recovered/Resolved]

NARRATIVE: CASE EVENT DATE: 20160229
